FAERS Safety Report 5799258-6 (Version None)
Quarter: 2008Q3

REPORT INFORMATION
  Report Type: 
  Country: None (occurrence: None)
  Receive Date: 20080701
  Receipt Date: 20080624
  Transmission Date: 20090109
  Serious: Yes (Other)
  Sender: FDA-Public Use
  Company Number: 2008016601

PATIENT
  Age: 20 Year
  Sex: Male
  Weight: 74.8 kg

DRUGS (1)
  1. LISTERINE WHITENING QUICK DISSOLVING STRIPS (NO ACTIVE INGREDIENT) [Suspect]
     Indication: DENTAL CARE
     Dosage: 2  STRIPS TWICE A DAY FOR A WEEK (2   IN 1 D), ORAL
     Route: 048
     Dates: start: 20080604, end: 20080613

REACTIONS (3)
  - APPLICATION SITE BURN [None]
  - DRUG INEFFECTIVE [None]
  - SCAR [None]
